FAERS Safety Report 15548284 (Version 2)
Quarter: 2019Q1

REPORT INFORMATION
  Report Type: Report from Study
  Country: None (occurrence: US)
  Receive Date: 20181024
  Receipt Date: 20190212
  Transmission Date: 20190417
  Serious: Yes (Hospitalization, Other)
  Sender: FDA-Public Use
  Company Number: US-ABBVIE-18K-163-2527875-00

PATIENT
  Age: 39 Year
  Sex: Male
  Weight: 69.46 kg

DRUGS (4)
  1. HUMIRA [Suspect]
     Active Substance: ADALIMUMAB
     Indication: CROHN^S DISEASE
     Route: 058
     Dates: start: 201808, end: 201810
  2. HUMIRA [Suspect]
     Active Substance: ADALIMUMAB
     Indication: ANKYLOSING SPONDYLITIS
     Route: 058
     Dates: start: 201811, end: 201812
  3. GABAPENTIN. [Concomitant]
     Active Substance: GABAPENTIN
     Indication: NEURALGIA
  4. HUMIRA [Suspect]
     Active Substance: ADALIMUMAB
     Route: 058
     Dates: start: 201801

REACTIONS (14)
  - Infected fistula [Recovered/Resolved]
  - Infection [Recovered/Resolved]
  - Respiratory tract infection viral [Recovered/Resolved]
  - Abdominal distension [Not Recovered/Not Resolved]
  - Cough [Recovered/Resolved]
  - Colonic abscess [Recovered/Resolved]
  - Procedural pain [Recovering/Resolving]
  - Gastrointestinal scarring [Recovered/Resolved]
  - Large intestinal stenosis [Recovered/Resolved]
  - Abdominal discomfort [Not Recovered/Not Resolved]
  - Anxiety [Not Recovered/Not Resolved]
  - Arthralgia [Not Recovered/Not Resolved]
  - Abdominal pain [Recovering/Resolving]
  - Gait inability [Recovering/Resolving]

NARRATIVE: CASE EVENT DATE: 2018
